FAERS Safety Report 17835219 (Version 1)
Quarter: 2020Q2

REPORT INFORMATION
  Report Type: Spontaneous
  Country: FR (occurrence: FR)
  Receive Date: 20200528
  Receipt Date: 20200528
  Transmission Date: 20200714
  Serious: Yes (Other)
  Sender: FDA-Public Use
  Company Number: FR-PFIZER INC-2020205813

PATIENT
  Age: 84 Year
  Sex: Female

DRUGS (4)
  1. ZOLEDRONIC ACID [Suspect]
     Active Substance: ZOLEDRONIC ACID
     Indication: OSTEOPOROSIS
     Dosage: 5 MG A YEAR
     Route: 042
     Dates: start: 201801, end: 202001
  2. NORDIMET [METHOTREXATE SODIUM] [Suspect]
     Active Substance: METHOTREXATE SODIUM
     Indication: RHEUMATOID ARTHRITIS
     Dosage: 1 DF, WEEKLY
     Route: 058
     Dates: start: 20180518
  3. ACIDE FOLIQUE [Suspect]
     Active Substance: FOLIC ACID
     Indication: ANAEMIA MACROCYTIC
     Dosage: 15 MG, WEEKLY
     Route: 048
     Dates: start: 20180518
  4. CHOLECALCIFEROL [Suspect]
     Active Substance: CHOLECALCIFEROL
     Indication: VITAMIN SUPPLEMENTATION
     Dosage: 100000 IU, MONTHLY
     Route: 048
     Dates: start: 20180105

REACTIONS (1)
  - Tooth loss [Not Recovered/Not Resolved]

NARRATIVE: CASE EVENT DATE: 2020
